FAERS Safety Report 6320014-4 (Version None)
Quarter: 2009Q3

REPORT INFORMATION
  Report Type: 
  Country: None (occurrence: None)
  Receive Date: 20090822
  Receipt Date: 20081014
  Transmission Date: 20100115
  Serious: No
  Sender: FDA-Public Use
  Company Number: US-ABBOTT-08P-163-0481671-00

PATIENT
  Sex: Female
  Weight: 81.72 kg

DRUGS (4)
  1. NIASPAN [Suspect]
     Indication: BLOOD CHOLESTEROL INCREASED
     Route: 048
     Dates: start: 20081009, end: 20081010
  2. PRINZIDE [Concomitant]
     Indication: HYPERTENSION
     Dosage: 10MG/12.5MG
     Route: 048
  3. AMITRIPTYLINE [Concomitant]
     Indication: INSOMNIA
     Route: 048
  4. CHLORMEZANONE [Concomitant]
     Indication: INSOMNIA
     Route: 048

REACTIONS (2)
  - DYSGEUSIA [None]
  - INSOMNIA [None]
